FAERS Safety Report 7967997-4 (Version None)
Quarter: 2011Q4

REPORT INFORMATION
  Report Type: 
  Country: None (occurrence: None)
  Receive Date: 20111209
  Receipt Date: 20111130
  Transmission Date: 20120403
  Serious: Yes (Other)
  Sender: FDA-Public Use
  Company Number: US-US-EMD SERONO, INC.-233151J10USA

PATIENT
  Sex: Female
  Weight: 75 kg

DRUGS (1)
  1. REBIF [Suspect]
     Indication: MULTIPLE SCLEROSIS
     Route: 058
     Dates: start: 20090611

REACTIONS (5)
  - INJECTION SITE ERYTHEMA [None]
  - ARTHRITIS [None]
  - RASH [None]
  - INJECTION SITE PAIN [None]
  - FATIGUE [None]
